FAERS Safety Report 21944526 (Version 3)
Quarter: 2024Q2

REPORT INFORMATION
  Report Type: Spontaneous
  Country: CA (occurrence: CA)
  Receive Date: 20230202
  Receipt Date: 20240531
  Transmission Date: 20240715
  Serious: Yes (Hospitalization, Disabling, Other)
  Sender: FDA-Public Use
  Company Number: US-BAYER-2012-071601

PATIENT
  Age: 30 Year
  Sex: Female
  Weight: 76 kg

DRUGS (14)
  1. YAZ [Suspect]
     Active Substance: DROSPIRENONE\ETHINYL ESTRADIOL
     Indication: Ovarian cyst
     Dosage: UNK
     Route: 048
     Dates: start: 201003, end: 20100414
  2. DROSPIRENONE\ETHINYL ESTRADIOL [Suspect]
     Active Substance: DROSPIRENONE\ETHINYL ESTRADIOL
     Indication: Ovarian cyst
     Dosage: UNK
     Route: 048
  3. PERCOCET [Concomitant]
     Active Substance: ACETAMINOPHEN\OXYCODONE HYDROCHLORIDE
     Route: 048
  4. DOCUSATE SODIUM [Concomitant]
     Active Substance: DOCUSATE SODIUM
     Dosage: UNK
     Dates: start: 20091214
  5. IBUPROFEN [Concomitant]
     Active Substance: IBUPROFEN
     Dosage: UNK
     Dates: start: 20091214
  6. CLINDAMYCIN [Concomitant]
     Active Substance: CLINDAMYCIN
  7. CEPHALEXIN [Concomitant]
     Active Substance: CEPHALEXIN
  8. ENDOCET [Concomitant]
     Active Substance: ACETAMINOPHEN\OXYCODONE HYDROCHLORIDE
     Route: 048
  9. DOXYCYCLINE HYCLATE [Concomitant]
     Active Substance: DOXYCYCLINE HYCLATE
  10. OXYCODONE AND ACETAMINOPHEN [Concomitant]
     Active Substance: ACETAMINOPHEN\OXYCODONE HYDROCHLORIDE
     Dosage: 2 EVERY 4 HOURS
     Dates: start: 20091214
  11. CLOXACILLIN SODIUM [Concomitant]
     Active Substance: CLOXACILLIN SODIUM
  12. DROSPIRENONE\ETHINYL ESTRADIOL [Concomitant]
     Active Substance: DROSPIRENONE\ETHINYL ESTRADIOL
     Indication: Ovarian cyst
     Dosage: 2 UNK
     Route: 048
  13. SODIUM PHOSPHATE [Concomitant]
     Active Substance: SODIUM PHOSPHATE
  14. OXYCODONE AND ACETAMINOPHEN [Concomitant]
     Active Substance: ACETAMINOPHEN\OXYCODONE HYDROCHLORIDE
     Route: 048

REACTIONS (10)
  - Cerebrovascular accident [Unknown]
  - Embolic stroke [Unknown]
  - Brain stem infarction [Unknown]
  - Cerebral infarction [Unknown]
  - Paraesthesia [Unknown]
  - Hypoaesthesia [Unknown]
  - Visual impairment [Unknown]
  - Pain [Unknown]
  - Anxiety [Unknown]
  - Post stroke depression [Unknown]

NARRATIVE: CASE EVENT DATE: 20100301
